FAERS Safety Report 5106963-3 (Version None)
Quarter: 2006Q3

REPORT INFORMATION
  Report Type: 
  Country: None (occurrence: None)
  Receive Date: 20060913
  Receipt Date: 20060829
  Transmission Date: 20061208
  Serious: Yes (Life-Threatening, Hospitalization)
  Sender: FDA-Public Use
  Company Number: 2006RL000318

PATIENT
  Age: 59 Year
  Sex: Female
  Weight: 81.6475 kg

DRUGS (4)
  1. RYTHMOL [Suspect]
     Indication: ATRIAL FIBRILLATION
     Dosage: 325 MG; BID; PO
     Route: 048
     Dates: start: 20060426, end: 20060828
  2. ASPIRIN [Concomitant]
  3. WARFARIN SODIUM [Concomitant]
  4. ACIPHEX [Concomitant]

REACTIONS (1)
  - VENTRICULAR FLUTTER [None]
